FAERS Safety Report 7207528-X (Version None)
Quarter: 2011Q1

REPORT INFORMATION
  Report Type: 
  Country: None (occurrence: None)
  Receive Date: 20110103
  Receipt Date: 20101014
  Transmission Date: 20110831
  Serious: Yes (Hospitalization)
  Sender: FDA-Public Use
  Company Number: US-PURDUE-USA-2010-0061676

PATIENT
  Age: 67 Year
  Sex: Female

DRUGS (2)
  1. OXYCONTIN [Suspect]
     Dosage: UNK
     Route: 048
     Dates: start: 20010101
  2. OXYCONTIN [Suspect]
     Indication: BACK PAIN
     Dosage: 40 MG, BID
     Route: 048
     Dates: start: 20060101

REACTIONS (4)
  - POOR QUALITY SLEEP [None]
  - DRUG INEFFECTIVE [None]
  - DECREASED APPETITE [None]
  - PRODUCT QUALITY ISSUE [None]
